FAERS Safety Report 19055124 (Version 1)
Quarter: 2021Q1

REPORT INFORMATION
  Report Type: Other
  Country: US (occurrence: US)
  Receive Date: 20210325
  Receipt Date: 20210325
  Transmission Date: 20210420
  Serious: Yes (Hospitalization)
  Sender: FDA-Public Use
  Company Number: US-ROCHE-2789783

PATIENT
  Age: 54 Year
  Sex: Male
  Weight: 95.34 kg

DRUGS (2)
  1. OCREVUS [Suspect]
     Active Substance: OCRELIZUMAB
     Indication: PROGRESSIVE RELAPSING MULTIPLE SCLEROSIS
     Route: 042
     Dates: start: 20200106
  2. OCREVUS [Suspect]
     Active Substance: OCRELIZUMAB
     Route: 065
     Dates: start: 202001

REACTIONS (12)
  - COVID-19 [Recovered/Resolved]
  - Uhthoff^s phenomenon [Recovered/Resolved]
  - Multiple organ dysfunction syndrome [Recovered/Resolved]
  - Muscular weakness [Recovered/Resolved]
  - Incorrect dose administered [Unknown]
  - Multiple sclerosis relapse [Recovered/Resolved]
  - Chills [Recovered/Resolved]
  - Dyspepsia [Recovered/Resolved]
  - Muscle spasms [Recovered/Resolved]
  - Fatigue [Recovered/Resolved]
  - Tremor [Recovered/Resolved]
  - Feeling jittery [Recovered/Resolved]

NARRATIVE: CASE EVENT DATE: 20200106
